FAERS Safety Report 14097493 (Version 5)
Quarter: 2018Q1

REPORT INFORMATION
  Report Type: Spontaneous
  Country: US (occurrence: US)
  Receive Date: 20171017
  Receipt Date: 20180103
  Transmission Date: 20180508
  Serious: Yes (Hospitalization)
  Sender: FDA-Public Use
  Company Number: PHEH2017US033560

PATIENT
  Sex: Male

DRUGS (3)
  1. LENVIMA [Suspect]
     Active Substance: LENVATINIB
     Indication: RENAL CANCER
     Dosage: 18 MG, QD
     Route: 048
     Dates: start: 20171011
  2. LENVIMA [Suspect]
     Active Substance: LENVATINIB
     Dosage: DOSE INCREASED
     Route: 048
     Dates: end: 20171211
  3. AFINITOR [Suspect]
     Active Substance: EVEROLIMUS
     Indication: PRODUCT USED FOR UNKNOWN INDICATION
     Dosage: UNK
     Route: 065
     Dates: start: 20171011

REACTIONS (12)
  - Decreased appetite [Unknown]
  - Insomnia [Unknown]
  - Weight decreased [Unknown]
  - Asthenia [Unknown]
  - Acne [Unknown]
  - Diarrhoea [Recovered/Resolved]
  - Arthralgia [Unknown]
  - Fatigue [Unknown]
  - Dehydration [Unknown]
  - Influenza [Unknown]
  - Clostridium difficile colitis [Unknown]
  - Blood pressure increased [Unknown]
